FAERS Safety Report 5745305-7 (Version None)
Quarter: 2008Q2

REPORT INFORMATION
  Report Type: 
  Country: None (occurrence: None)
  Receive Date: 20080521
  Receipt Date: 20080518
  Transmission Date: 20081010
  Serious: Yes (Other)
  Sender: FDA-Public Use
  Company Number: GB-ROCHE-565007

PATIENT
  Sex: Female
  Weight: 96.1 kg

DRUGS (3)
  1. ORLISTAT [Suspect]
     Indication: OBESITY
     Route: 048
     Dates: start: 20080331, end: 20080406
  2. GLICLAZIDE [Concomitant]
     Dosage: REPORTED AS GLICAZIDE
     Route: 048
  3. METFORMIN HCL [Concomitant]
     Route: 048

REACTIONS (1)
  - CEREBROVASCULAR ACCIDENT [None]
